FAERS Safety Report 17545910 (Version 1)
Quarter: 2020Q1

REPORT INFORMATION
  Report Type: Spontaneous
  Country: US (occurrence: US)
  Receive Date: 20200316
  Receipt Date: 20200316
  Transmission Date: 20200409
  Serious: No
  Sender: FDA-Public Use
  Company Number: US-PFIZER INC-2016349005

PATIENT
  Age: 77 Year
  Sex: Male

DRUGS (9)
  1. VIAGRA [Suspect]
     Active Substance: SILDENAFIL CITRATE
     Dosage: UNK, AS NEEDED [TAKE 1/2 - 1 TAB 1/2 HR BEFORE NEEDED]
  2. VITAMIN D3 [Concomitant]
     Active Substance: CHOLECALCIFEROL
     Dosage: 1000 IU, DAILY [VITAMIN D3, 400 UNIT CAPSULE, TAKE 1,000 UNITS BY MOUTH DAILY]
     Route: 048
  3. NEURONTIN [Concomitant]
     Active Substance: GABAPENTIN
     Dosage: 100 MG, 2X/DAY [TAKE 100MG IN THE MORNING AND IN THE AFTERNOON]
     Dates: start: 20160526
  4. ASPIRIN 81 [Concomitant]
     Active Substance: ASPIRIN
     Dosage: 81 MG, DAILY
     Route: 048
  5. THERAGRAN [ASCORBIC ACID;BIOTIN;CALCIUM PANTOTHENATE;CYANOCOBALAMIN;ER [Concomitant]
     Dosage: 1 DF, DAILY
     Route: 048
  6. VITAMIN C [Concomitant]
     Active Substance: ASCORBIC ACID
     Dosage: 500 MG, DAILY
     Route: 048
  7. OYSTER SHELL CALCIUM + D3 [Concomitant]
     Dosage: 1 DF, DAILY [TAKE 1 TABLET BY MOUTH DAILY. CALCIUM + VIT D3 500MG/630 IU]
     Route: 048
  8. KLONOPIN [Concomitant]
     Active Substance: CLONAZEPAM
     Indication: RESTLESS LEGS SYNDROME
     Dosage: UNK, AS NEEDED [TAKE 1-2 TABLETS BY MOUTH 3 TIMES DAILY AS NEEDED]
     Route: 048
     Dates: start: 20160623
  9. NEURONTIN [Concomitant]
     Active Substance: GABAPENTIN
     Dosage: 300 MG, 1X/DAY [TAKE 1 CAPSULE BY MOUTH NIGHTLY AT BEDTIME]
     Route: 048
     Dates: start: 20160526

REACTIONS (1)
  - Memory impairment [Unknown]
